FAERS Safety Report 23973123 (Version 2)
Quarter: 2024Q3

REPORT INFORMATION
  Report Type: Spontaneous
  Country: FR (occurrence: FR)
  Receive Date: 20240613
  Receipt Date: 20240709
  Transmission Date: 20241017
  Serious: Yes (Hospitalization)
  Sender: TEVA
  Company Number: None

PATIENT
  Age: 9 Year
  Sex: Male
  Weight: 25 kg

DRUGS (4)
  1. DOXORUBICIN [Suspect]
     Active Substance: DOXORUBICIN
     Indication: Neuroblastoma
     Dosage: C4J6-N6 NO.2 -} CAJ7-N6 NO.2
     Route: 042
     Dates: start: 20230113, end: 20230214
  2. IFOSFAMIDE [Suspect]
     Active Substance: IFOSFAMIDE
     Indication: Neuroblastoma
     Dosage: C4J1-N6 N?2 -} INFUSION DURATION = 120H
     Route: 042
     Dates: start: 20230110, end: 20230214
  3. VINCRISTINE [Suspect]
     Active Substance: VINCRISTINE
     Indication: Neuroblastoma
     Dosage: C4J1-N6 N?2 + C4J8-N6 N?2VINCRISTINE (SULFATE DE)
     Route: 042
     Dates: start: 20230110, end: 20230217
  4. DACARBAZINE [Suspect]
     Active Substance: DACARBAZINE
     Indication: Neuroblastoma
     Dosage: C4J1-N6 N?2 -}CAJ5-N4 N?2
     Route: 042
     Dates: start: 20230110, end: 20230214

REACTIONS (1)
  - Febrile bone marrow aplasia [Recovered/Resolved]

NARRATIVE: CASE EVENT DATE: 20230223
